FAERS Safety Report 13986765 (Version 1)
Quarter: 2017Q3

REPORT INFORMATION
  Report Type: Spontaneous
  Country: US (occurrence: US)
  Receive Date: 20170919
  Receipt Date: 20170919
  Transmission Date: 20171128
  Serious: No
  Sender: FDA-Public Use
  Company Number: US-009507513-1709USA005492

PATIENT
  Age: 39 Year
  Sex: Female
  Weight: 68.03 kg

DRUGS (1)
  1. NEXPLANON [Suspect]
     Active Substance: ETONOGESTREL
     Indication: CONTRACEPTION
     Dosage: 1 LEFT ARM IMPLANT EVERY 3 YEARS
     Route: 059
     Dates: start: 20170908

REACTIONS (3)
  - Implant site pain [Unknown]
  - Implant site irritation [Unknown]
  - Implant site erythema [Unknown]

NARRATIVE: CASE EVENT DATE: 20170909
